FAERS Safety Report 7995526-8 (Version None)
Quarter: 2011Q4

REPORT INFORMATION
  Report Type: 
  Country: None (occurrence: None)
  Receive Date: 20111220
  Receipt Date: 20111216
  Transmission Date: 20120403
  Serious: Yes (Other)
  Sender: FDA-Public Use
  Company Number: US-PFIZER INC-2011307573

PATIENT
  Sex: Male

DRUGS (1)
  1. CHANTIX [Suspect]
     Dosage: UNK

REACTIONS (9)
  - AGGRESSION [None]
  - MOOD ALTERED [None]
  - EPISTAXIS [None]
  - OROPHARYNGEAL PAIN [None]
  - DEPRESSION [None]
  - LOGORRHOEA [None]
  - DRY MOUTH [None]
  - NASAL DRYNESS [None]
  - CHEST PAIN [None]
